FAERS Safety Report 5102922-5 (Version None)
Quarter: 2006Q3

REPORT INFORMATION
  Report Type: 
  Country: None (occurrence: None)
  Receive Date: 20060907
  Receipt Date: 20060818
  Transmission Date: 20061208
  Serious: Yes (Hospitalization)
  Sender: FDA-Public Use
  Company Number: GB200607001125

PATIENT
  Age: 36 Year
  Sex: Female
  Weight: 58 kg

DRUGS (3)
  1. CYMBALTA [Suspect]
     Indication: DEPRESSION
     Dosage: 60 MG, DAILY (1/D); ORAL
     Route: 048
     Dates: start: 20060630, end: 20060706
  2. MICROGYNON /GFR/ (ETHINYLESTRADIOL, LEVONORGESTREL) [Concomitant]
  3. MIRTAZAPINE [Concomitant]

REACTIONS (4)
  - CONSCIOUSNESS FLUCTUATING [None]
  - FALL [None]
  - LOSS OF CONSCIOUSNESS [None]
  - PANIC ATTACK [None]
